FAERS Safety Report 4778250-4 (Version None)
Quarter: 2005Q3

REPORT INFORMATION
  Report Type: 
  Country: None (occurrence: None)
  Receive Date: 20050926
  Receipt Date: 20030501
  Transmission Date: 20060218
  Serious: Yes (Other)
  Sender: FDA-Public Use
  Company Number: US-BRISTOL-MYERS SQUIBB COMPANY-12271680

PATIENT
  Sex: Female

DRUGS (17)
  1. STADOL [Suspect]
     Indication: MIGRAINE
     Dates: start: 19940101, end: 20020101
  2. BUTALBITAL + CAFFEINE + ACETAMINOPHEN [Concomitant]
  3. PROPOXYPHENE NAPSYLATE [Concomitant]
  4. HYDROCODONE BITARTRATE + ACETAMINOPHEN [Concomitant]
  5. CYCLOBENZAPRINE HCL [Concomitant]
  6. CODEINE PHOSPHATE [Concomitant]
  7. CARISOPRODOL [Concomitant]
  8. OXYCODONE HCL + ACETAMINOPHEN [Concomitant]
  9. PROCHLORPERAZINE MALEATE [Concomitant]
  10. AMITRIPTYLINE HCL [Concomitant]
  11. NYSTATIN [Concomitant]
  12. IBUPROFEN [Concomitant]
  13. PROMETHAZINE HCL [Concomitant]
  14. METHOCARBAMOL [Concomitant]
  15. OXAZEPAM [Concomitant]
  16. LANSOPRAZOLE [Concomitant]
  17. NORTRIPTYLINE HCL [Concomitant]

REACTIONS (1)
  - DEPENDENCE [None]
